FAERS Safety Report 9535377 (Version 2)
Quarter: 2013Q4

REPORT INFORMATION
  Report Type: Spontaneous
  Country: US (occurrence: US)
  Receive Date: 20130918
  Receipt Date: 20131016
  Transmission Date: 20140711
  Serious: Yes (Other)
  Sender: FDA-Public Use
  Company Number: US-FRI-1000048808

PATIENT
  Age: 73 Year
  Sex: Female

DRUGS (9)
  1. LINZESS [Suspect]
     Indication: CONSTIPATION
     Dosage: 290 MCG
     Route: 048
     Dates: start: 20130911, end: 20130911
  2. METFORMIN [Concomitant]
     Indication: DIABETES MELLITUS
  3. BABY ASPIRIN [Concomitant]
     Dosage: 81 MG
  4. FISH OIL [Concomitant]
  5. BIOTIN [Concomitant]
  6. CHLOROTHIAZIDE [Concomitant]
     Indication: HYPERTENSION
     Dosage: 25 MG
  7. BYSTOLIC [Concomitant]
     Indication: HYPERTENSION
  8. LAXATIVE [Concomitant]
  9. PROBIOTIC [Concomitant]

REACTIONS (4)
  - Hypokalaemia [Recovered/Resolved]
  - Asthenia [Recovered/Resolved]
  - Loss of consciousness [Recovered/Resolved]
  - Hypotension [Unknown]
